FAERS Safety Report 23094683 (Version 2)
Quarter: 2023Q4

REPORT INFORMATION
  Report Type: Spontaneous
  Country: US (occurrence: US)
  Receive Date: 20231023
  Receipt Date: 20231024
  Transmission Date: 20240110
  Serious: No
  Sender: FDA-Public Use
  Company Number: US-ALXN-A202313851

PATIENT
  Age: 48 Year
  Sex: Female

DRUGS (1)
  1. SOLIRIS [Suspect]
     Active Substance: ECULIZUMAB
     Indication: Neuromyelitis optica spectrum disorder
     Dosage: UNK
     Route: 042
     Dates: start: 201911

REACTIONS (1)
  - Suspected COVID-19 [Not Recovered/Not Resolved]

NARRATIVE: CASE EVENT DATE: 20231001
